FAERS Safety Report 5866763-3 (Version None)
Quarter: 2008Q3

REPORT INFORMATION
  Report Type: 
  Country: None (occurrence: None)
  Receive Date: 20080821
  Receipt Date: 20080807
  Transmission Date: 20090109
  Serious: Yes (Death, Hospitalization)
  Sender: FDA-Public Use
  Company Number: THYM-11251

PATIENT
  Age: 46 Year
  Sex: Male

DRUGS (11)
  1. THYMOGLOBULIN [Suspect]
     Indication: RENAL AND PANCREAS TRANSPLANT
     Dosage: 75 MG, QD, INTRAVENOUS, QOD, INTRAVENOUS
     Route: 042
     Dates: start: 20040829, end: 20040829
  2. THYMOGLOBULIN [Suspect]
     Indication: RENAL AND PANCREAS TRANSPLANT
     Dosage: 75 MG, QD, INTRAVENOUS, QOD, INTRAVENOUS
     Route: 042
     Dates: start: 20040830, end: 20040905
  3. TACROLIMUS [Suspect]
     Indication: IMMUNOSUPPRESSION
  4. SIROLIMUS (SIROLIMUS) [Suspect]
     Indication: IMMUNOSUPPRESSION
  5. BACTRIM [Concomitant]
  6. VALACYCLOVIR HCL [Concomitant]
  7. HEPARIN [Concomitant]
  8. ASPIRIN [Concomitant]
  9. CELLCEPT [Concomitant]
  10. SOLU-MEDROL [Concomitant]
  11. STEROIDS (PREDNISONE OR PREDNISOLONE) [Concomitant]

REACTIONS (6)
  - BK VIRUS INFECTION [None]
  - HAEMODIALYSIS [None]
  - KIDNEY TRANSPLANT REJECTION [None]
  - RENAL FAILURE [None]
  - SEPTIC SHOCK [None]
  - SHOCK HAEMORRHAGIC [None]
